FAERS Safety Report 4305181-6 (Version None)
Quarter: 2004Q1

REPORT INFORMATION
  Report Type: 
  Country: None (occurrence: None)
  Receive Date: 20040225
  Receipt Date: 20040225
  Transmission Date: 20041129
  Serious: Yes (Life-Threatening, Hospitalization)
  Sender: FDA-Public Use
  Company Number: None

PATIENT
  Age: 69 Year
  Sex: Male

DRUGS (17)
  1. FLUCONAZOLE [Suspect]
     Indication: URINARY TRACT INFECTION
     Dosage: 200 MG X 1 , 100 MG PO
     Route: 048
     Dates: start: 20031104, end: 20031106
  2. HALOPERIDOL [Suspect]
     Indication: AGITATION
     Dosage: 7.5 MG PO Q4M5 MG Q 6 H
     Route: 048
     Dates: start: 20031104, end: 20031106
  3. ALBUTEROL [Concomitant]
  4. AMIODARONE HCL [Concomitant]
  5. ASCORBIC ACID [Concomitant]
  6. ASPIRIN [Concomitant]
  7. CHLORHYDRATE [Concomitant]
  8. DOCUSATE [Concomitant]
  9. FENTANYL [Concomitant]
  10. HEPARIN [Concomitant]
  11. IPRATROPIUM BROMIDE [Concomitant]
  12. METOPROLOL [Concomitant]
  13. MIDAZOLAM HCL [Concomitant]
  14. NICOTINE [Concomitant]
  15. NYSTATIN [Concomitant]
  16. RANITIDINE [Concomitant]
  17. ZINC SULFATE [Concomitant]

REACTIONS (6)
  - ATRIAL FIBRILLATION [None]
  - BUNDLE BRANCH BLOCK [None]
  - ELECTROCARDIOGRAM QT CORRECTED INTERVAL PROLONGED [None]
  - HEART RATE INCREASED [None]
  - SUPRAVENTRICULAR TACHYCARDIA [None]
  - VENTRICULAR TACHYCARDIA [None]
